FAERS Safety Report 21766048 (Version 2)
Quarter: 2023Q2

REPORT INFORMATION
  Report Type: Spontaneous
  Country: FR (occurrence: FR)
  Receive Date: 20221222
  Receipt Date: 20230504
  Transmission Date: 20230721
  Serious: Yes (Death, Hospitalization, Other)
  Sender: FDA-Public Use
  Company Number: FR-ROCHE-3231669

PATIENT
  Age: 28 Year
  Sex: Female

DRUGS (5)
  1. RITUXIMAB [Suspect]
     Active Substance: RITUXIMAB
     Indication: Acquired epidermolysis bullosa
     Dosage: 2 INFUSIONS 15 DAYS APART
     Route: 042
  2. METHYLPREDNISOLONE [Suspect]
     Active Substance: METHYLPREDNISOLONE
     Indication: Acquired epidermolysis bullosa
     Dosage: TWO BOLUSES
  3. PREDNISONE [Suspect]
     Active Substance: PREDNISONE
     Indication: Acquired epidermolysis bullosa
     Dosage: 1MG/KG/DAY
  4. CYCLOSPORINE [Suspect]
     Active Substance: CYCLOSPORINE
     Indication: Acquired epidermolysis bullosa
     Dosage: 5MG/KG/D
  5. SULFASALAZINE [Concomitant]
     Active Substance: SULFASALAZINE
     Dosage: UNK

REACTIONS (3)
  - Acute respiratory failure [Fatal]
  - Pneumocystis jirovecii pneumonia [Fatal]
  - Off label use [Unknown]
